FAERS Safety Report 12446282 (Version 1)
Quarter: 2016Q2

REPORT INFORMATION
  Report Type: Report from Study
  Country: US (occurrence: US)
  Receive Date: 20160608
  Receipt Date: 20160608
  Transmission Date: 20160815
  Serious: Yes (Hospitalization)
  Sender: FDA-Public Use
  Company Number: US-ROCHE-1769740

PATIENT
  Sex: Female

DRUGS (38)
  1. IRINOTECAN [Suspect]
     Active Substance: IRINOTECAN
     Dosage: TOTAL DOSE: 367 MG?DAY 1 OF CYCLE 2
     Route: 065
     Dates: start: 20160210
  2. IRINOTECAN [Suspect]
     Active Substance: IRINOTECAN
     Dosage: TOTAL DOSE: 367 MG?DAY 1 OF CYCLE 4
     Route: 065
     Dates: start: 20160309
  3. TIPIRACIL HYDROCHLORIDE/TRIFLURIDINE [Suspect]
     Active Substance: TIPIRACIL HYDROCHLORIDE\TRIFLURIDINE
     Indication: PRODUCT USED FOR UNKNOWN INDICATION
     Dosage: TOTAL DOSE: 100 MG?DAY 1 OF CYCLE 1?LAST DOSE PRIOR TO SAE: 22/MAY/2016
     Route: 065
     Dates: start: 20160127, end: 20160129
  4. TIPIRACIL HYDROCHLORIDE/TRIFLURIDINE [Suspect]
     Active Substance: TIPIRACIL HYDROCHLORIDE\TRIFLURIDINE
     Dosage: TOTAL DOSE: 100 MG?DAY 1 OF CYCLE 5
     Route: 065
     Dates: start: 20160323, end: 20160327
  5. HUMULIN R [Concomitant]
     Active Substance: INSULIN HUMAN
     Indication: TYPE 2 DIABETES MELLITUS
     Route: 065
     Dates: start: 20000101
  6. DECADRON [Concomitant]
     Active Substance: DEXAMETHASONE
     Indication: NAUSEA
     Route: 065
     Dates: start: 20160203
  7. BEVACIZUMAB [Suspect]
     Active Substance: BEVACIZUMAB
     Indication: PRODUCT USED FOR UNKNOWN INDICATION
     Dosage: TOTAL DOSE INFUSED: 440 MG?DAY 1 OF CYCLE 1?LAST DOSE PRIOR TO SAE: 22/MAY/2016
     Route: 042
     Dates: start: 20160127
  8. TIPIRACIL HYDROCHLORIDE/TRIFLURIDINE [Suspect]
     Active Substance: TIPIRACIL HYDROCHLORIDE\TRIFLURIDINE
     Dosage: TOTAL DOSE: 100 MG?DAY 1 OF CYCLE 4
     Route: 065
     Dates: start: 20160309, end: 20160313
  9. IMODIUM [Concomitant]
     Active Substance: LOPERAMIDE HYDROCHLORIDE
     Indication: DIARRHOEA
     Route: 065
     Dates: start: 20160210
  10. BEVACIZUMAB [Suspect]
     Active Substance: BEVACIZUMAB
     Dosage: TOTAL DOSE INFUSED: 440 MG?DAY 1 OF CYCLE 3
     Route: 042
     Dates: start: 20160225
  11. EMLA [Concomitant]
     Active Substance: LIDOCAINE\PRILOCAINE
     Route: 065
     Dates: start: 20150730
  12. BEVACIZUMAB [Suspect]
     Active Substance: BEVACIZUMAB
     Dosage: TOTAL DOSE INFUSED: 440 MG?DAY 1 OF CYCLE 7
     Route: 042
     Dates: start: 20160420
  13. TIPIRACIL HYDROCHLORIDE/TRIFLURIDINE [Suspect]
     Active Substance: TIPIRACIL HYDROCHLORIDE\TRIFLURIDINE
     Dosage: TOTAL DOSE: 100 MG?DAY 1 OF CYCLE 7
     Route: 065
     Dates: start: 20160420
  14. TIPIRACIL HYDROCHLORIDE/TRIFLURIDINE [Suspect]
     Active Substance: TIPIRACIL HYDROCHLORIDE\TRIFLURIDINE
     Dosage: TOTAL DOSE: 100 MG?DAY 1 OF CYCLE 8
     Route: 065
     Dates: start: 20160504
  15. PROMETHAZINE [Concomitant]
     Active Substance: PROMETHAZINE\PROMETHAZINE HYDROCHLORIDE
     Indication: VOMITING
  16. APIXABAN [Concomitant]
     Active Substance: APIXABAN
     Indication: PULMONARY EMBOLISM
     Route: 065
     Dates: start: 20160331
  17. BEVACIZUMAB [Suspect]
     Active Substance: BEVACIZUMAB
     Dosage: TOTAL DOSE INFUSED: 440 MG?DAY 1 OF CYCLE 2
     Route: 042
     Dates: start: 20160210
  18. BEVACIZUMAB [Suspect]
     Active Substance: BEVACIZUMAB
     Dosage: TOTAL DOSE INFUSED: 440 MG?DAY 1 OF CYCLE 8
     Route: 042
     Dates: start: 20160504
  19. IRINOTECAN [Suspect]
     Active Substance: IRINOTECAN
     Indication: PRODUCT USED FOR UNKNOWN INDICATION
     Dosage: TOTAL DOSE: 367 MG?DAY 1 OF CYCLE 1?LAST DOSE PRIOR TO SAE: 22/MAY/2016
     Route: 065
     Dates: start: 20160127
  20. IRINOTECAN [Suspect]
     Active Substance: IRINOTECAN
     Dosage: TOTAL DOSE: 367 MG?DAY 1 OF CYCLE 6
     Route: 065
     Dates: start: 20160406
  21. IRINOTECAN [Suspect]
     Active Substance: IRINOTECAN
     Dosage: TOTAL DOSE: 367 MG?DAY 1 OF CYCLE 8
     Route: 065
     Dates: start: 20160504
  22. HUMULIN N [Concomitant]
     Active Substance: INSULIN HUMAN
     Indication: TYPE 2 DIABETES MELLITUS
     Route: 065
     Dates: start: 20000101
  23. ZOFRAN [Concomitant]
     Active Substance: ONDANSETRON HYDROCHLORIDE
     Indication: NAUSEA
     Route: 065
     Dates: start: 20160127
  24. CODEINE/GUAIFENESIN [Concomitant]
     Active Substance: CODEINE\GUAIFENESIN
     Indication: COUGH
     Route: 048
     Dates: start: 20160114
  25. TYLENOL [Concomitant]
     Active Substance: ACETAMINOPHEN
     Indication: BACK PAIN
     Route: 065
     Dates: start: 20160210
  26. BEVACIZUMAB [Suspect]
     Active Substance: BEVACIZUMAB
     Dosage: TOTAL DOSE INFUSED: 440 MG?DAY 1 OF CYCLE 4
     Route: 042
     Dates: start: 20160309
  27. BEVACIZUMAB [Suspect]
     Active Substance: BEVACIZUMAB
     Dosage: TOTAL DOSE INFUSED: 440 MG?DAY 1 OF CYCLE 5
     Route: 042
     Dates: start: 20160323
  28. IRINOTECAN [Suspect]
     Active Substance: IRINOTECAN
     Dosage: TOTAL DOSE: 367 MG?DAY 1 OF CYCLE 7
     Route: 065
     Dates: start: 20160420
  29. TIPIRACIL HYDROCHLORIDE/TRIFLURIDINE [Suspect]
     Active Substance: TIPIRACIL HYDROCHLORIDE\TRIFLURIDINE
     Dosage: TOTAL DOSE: 100 MG?DAY 1 OF CYCLE 2
     Route: 065
     Dates: start: 20160210, end: 20160214
  30. TIPIRACIL HYDROCHLORIDE/TRIFLURIDINE [Suspect]
     Active Substance: TIPIRACIL HYDROCHLORIDE\TRIFLURIDINE
     Dosage: TOTAL DOSE: 100 MG?DAY 1 OF CYCLE 6
     Route: 065
     Dates: start: 20160406, end: 20160410
  31. OXYCODONE [Concomitant]
     Active Substance: OXYCODONE
     Indication: BACK PAIN
     Route: 065
     Dates: start: 20151202
  32. LOMOTIL (UNITED STATES) [Concomitant]
     Indication: DIARRHOEA
     Dosage: 2.5 MG/0.025 MG
     Route: 065
     Dates: start: 20160215
  33. FOSAPREPITANT [Concomitant]
     Active Substance: FOSAPREPITANT
     Indication: NAUSEA
     Route: 065
     Dates: start: 20160210
  34. IRINOTECAN [Suspect]
     Active Substance: IRINOTECAN
     Dosage: TOTAL DOSE: 367 MG?DAY 1 OF CYCLE 3
     Route: 065
     Dates: start: 20160225
  35. IRINOTECAN [Suspect]
     Active Substance: IRINOTECAN
     Dosage: TOTAL DOSE: 367 MG?DAY 1 OF CYCLE 5
     Route: 065
     Dates: start: 20160323
  36. TIPIRACIL HYDROCHLORIDE/TRIFLURIDINE [Suspect]
     Active Substance: TIPIRACIL HYDROCHLORIDE\TRIFLURIDINE
     Dosage: TOTAL DOSE: 100 MG?DAY 1 OF CYCLE 3
     Route: 065
     Dates: start: 20160225, end: 20160229
  37. PROMETHAZINE [Concomitant]
     Active Substance: PROMETHAZINE\PROMETHAZINE HYDROCHLORIDE
     Indication: NAUSEA
     Route: 065
     Dates: start: 20160201
  38. LISINOPRIL. [Concomitant]
     Active Substance: LISINOPRIL
     Indication: HYPERTENSION
     Route: 065
     Dates: start: 20140101

REACTIONS (1)
  - Diabetic ketoacidosis [Recovered/Resolved]

NARRATIVE: CASE EVENT DATE: 20160523
